FAERS Safety Report 10768271 (Version 1)
Quarter: 2015Q1

REPORT INFORMATION
  Report Type: Spontaneous
  Country: GB (occurrence: GB)
  Receive Date: 20150206
  Receipt Date: 20150206
  Transmission Date: 20150721
  Serious: Yes (Disabling)
  Sender: FDA-Public Use
  Company Number: GB-THROMBOGENICS NV-SPO-2014-1342

PATIENT
  Age: 59 Year
  Sex: Female

DRUGS (1)
  1. JETREA [Suspect]
     Active Substance: OCRIPLASMIN
     Dosage: 0.125 MG, ONE TIME DOSE
     Route: 031
     Dates: start: 20131129, end: 20131129

REACTIONS (7)
  - Macular hole [Recovered/Resolved with Sequelae]
  - Visual impairment [Recovered/Resolved with Sequelae]
  - Chromatopsia [Recovered/Resolved with Sequelae]
  - Retinal injury [Recovered/Resolved with Sequelae]
  - Disease progression [Unknown]
  - Visual acuity reduced [Recovered/Resolved with Sequelae]
  - Photopsia [Recovered/Resolved with Sequelae]

NARRATIVE: CASE EVENT DATE: 20131216
